FAERS Safety Report 20085614 (Version 1)
Quarter: 2021Q4

REPORT INFORMATION
  Report Type: Spontaneous
  Country: US (occurrence: US)
  Receive Date: 20211118
  Receipt Date: 20211118
  Transmission Date: 20220303
  Serious: Yes (Hospitalization)
  Sender: FDA-Public Use
  Company Number: US-AVEO ONCOLOGY-2021-AVEO-US003649

PATIENT

DRUGS (23)
  1. FOTIVDA [Suspect]
     Active Substance: TIVOZANIB HYDROCHLORIDE
     Indication: Renal cell carcinoma
     Dosage: 1.34 MG, DAILY, 1 CAP DAILY FOR 21 DAYS ON THEN 7 DAYS OFF
     Route: 048
     Dates: start: 20210826
  2. CABOMETYX [Concomitant]
     Active Substance: CABOZANTINIB S-MALATE
     Dosage: 60 MG
     Route: 048
     Dates: start: 20210824
  3. CABOMETYX [Concomitant]
     Active Substance: CABOZANTINIB S-MALATE
     Dosage: 40 MG
     Route: 048
     Dates: start: 20210717
  4. BUDESONIDE [Concomitant]
     Active Substance: BUDESONIDE
     Dosage: 6 MG, DAILY
     Dates: start: 20210817
  5. DICYCLOMINE [Concomitant]
     Active Substance: DICYCLOMINE HYDROCHLORIDE
     Dosage: 10 MG, QID
     Route: 048
     Dates: start: 20210817
  6. LENVATINIB [Concomitant]
     Active Substance: LENVATINIB
     Dosage: 18 MG,QDAY
     Route: 048
     Dates: start: 20211021
  7. LENVATINIB [Concomitant]
     Active Substance: LENVATINIB
     Dosage: 20 MG
     Dates: start: 20210817
  8. LIPITOR [Concomitant]
     Active Substance: ATORVASTATIN CALCIUM
     Dosage: 10 MG
     Route: 048
     Dates: start: 20210817
  9. DIPHENHYDRAMINE HYDROCHLORIDE\LIDOCAINE HYDROCHLORIDE\NYSTATIN [Concomitant]
     Active Substance: DIPHENHYDRAMINE HYDROCHLORIDE\LIDOCAINE HYDROCHLORIDE\NYSTATIN
     Dosage: 10 ML EVERY 3 TO 4 HOURS AS NEEDED
     Dates: start: 20210817
  10. OMEPRAZOLE [Concomitant]
     Active Substance: OMEPRAZOLE
     Dosage: 20 MG, DAILY
     Route: 048
     Dates: start: 20210817
  11. ONDANSETRON [Concomitant]
     Active Substance: ONDANSETRON
     Dosage: 20 MG, DAILY, 8H MG Q8H PRN
     Route: 048
     Dates: start: 20210817
  12. PREDNISONE [Concomitant]
     Active Substance: PREDNISONE
     Dosage: 60 MG, DAILY
     Route: 048
     Dates: start: 20210817
  13. SYNTHROID [Concomitant]
     Active Substance: LEVOTHYROXINE SODIUM
     Dosage: 175 UG
     Dates: start: 20210817
  14. TRAMADOL [Concomitant]
     Active Substance: TRAMADOL
     Dosage: 50 MG,Q6H PRN
     Route: 048
     Dates: start: 20210816
  15. TRAMADOL [Concomitant]
     Active Substance: TRAMADOL
     Dosage: 50 MG, PRN Q6HR
     Dates: start: 20210817
  16. UREA [Concomitant]
     Active Substance: UREA
     Dosage: UNK,10% CREAM TOPICAL APPLICATION BID
     Route: 061
     Dates: start: 20210917
  17. UREA [Concomitant]
     Active Substance: UREA
     Dosage: 1 TOPICAL APPLICATION, BID
     Dates: start: 20210817
  18. PRAMOXINE HC [Concomitant]
     Dosage: UNK, 1% UNIT TOPICAL ROUTE AS DIRECTED
     Route: 061
     Dates: start: 20210817
  19. DEXAMETHASONE [Concomitant]
     Active Substance: DEXAMETHASONE
     Dosage: 0.5 ML,10ML QID
     Dates: start: 20211021
  20. OMNIPAQUE [Concomitant]
     Active Substance: IOHEXOL
     Dosage: 350 MG IODINE/ML 100 ML
     Dates: start: 20211007
  21. EVEROLIMUS [Concomitant]
     Active Substance: EVEROLIMUS
     Dosage: 5 MG
     Route: 048
     Dates: start: 20211021
  22. MIRALAX [Concomitant]
     Active Substance: POLYETHYLENE GLYCOL 3350
  23. BIOTENE NOS [Concomitant]
     Active Substance: CETYLPYRIDINIUM CHLORIDE OR SODIUM FLUORIDE OR SODIUM MONOFLUOROPHOSPHATE OR GLUCOSE OXIDASE\LACTOFE

REACTIONS (5)
  - Metastases to central nervous system [Unknown]
  - Cough [Unknown]
  - Fatigue [Unknown]
  - Dry mouth [Unknown]
  - Oxygen saturation decreased [Unknown]
